FAERS Safety Report 7864795-7 (Version None)
Quarter: 2011Q4

REPORT INFORMATION
  Report Type: 
  Country: None (occurrence: None)
  Receive Date: 20111028
  Receipt Date: 20110727
  Transmission Date: 20120403
  Serious: No
  Sender: FDA-Public Use
  Company Number: US-GLAXOSMITHKLINE-A0811990A

PATIENT
  Age: 60 Year
  Sex: Female

DRUGS (11)
  1. SIMVASTATIN [Concomitant]
  2. AMBIEN [Concomitant]
  3. VITAMIN TAB [Concomitant]
  4. CLONAZEPAM [Concomitant]
  5. PREDNISONE [Concomitant]
  6. ADVAIR DISKUS 100/50 [Suspect]
     Indication: CHRONIC OBSTRUCTIVE PULMONARY DISEASE
     Dosage: 1PUFF TWICE PER DAY
     Route: 055
  7. PROAIR HFA [Concomitant]
  8. ANTIVERT [Concomitant]
  9. GABAPENTIN [Concomitant]
  10. OSCAL [Concomitant]
  11. RELAFEN [Concomitant]

REACTIONS (9)
  - CHEST DISCOMFORT [None]
  - DRUG INEFFECTIVE [None]
  - DIZZINESS [None]
  - DISORIENTATION [None]
  - PRODUCT QUALITY ISSUE [None]
  - RESPIRATORY TRACT CONGESTION [None]
  - BONE DENSITY DECREASED [None]
  - AGITATION [None]
  - INSOMNIA [None]
